FAERS Safety Report 19922286 (Version 1)
Quarter: 2021Q4

REPORT INFORMATION
  Report Type: Spontaneous
  Country: US (occurrence: US)
  Receive Date: 20211005
  Receipt Date: 20211005
  Transmission Date: 20220303
  Serious: Yes (Other)
  Sender: FDA-Public Use
  Company Number: None

PATIENT
  Age: 44 Year
  Sex: Female
  Weight: 103.5 kg

DRUGS (3)
  1. CIPROFLOXACIN [Suspect]
     Active Substance: CIPROFLOXACIN
     Indication: Diverticulitis
     Dosage: ?          QUANTITY:1 TABLET(S);
     Route: 048
     Dates: start: 20210802, end: 20210808
  2. ADDERALL [Concomitant]
     Active Substance: AMPHETAMINE ASPARTATE\AMPHETAMINE SULFATE\DEXTROAMPHETAMINE SACCHARATE\DEXTROAMPHETAMINE SULFATE
  3. CIPRO [Concomitant]
     Active Substance: CIPROFLOXACIN HYDROCHLORIDE

REACTIONS (12)
  - Melaena [None]
  - Dysgeusia [None]
  - Dry mouth [None]
  - Dizziness [None]
  - Heart rate increased [None]
  - Headache [None]
  - Abdominal pain upper [None]
  - Fatigue [None]
  - Chills [None]
  - Pyrexia [None]
  - Hypersensitivity [None]
  - Adverse drug reaction [None]

NARRATIVE: CASE EVENT DATE: 20210806
